FAERS Safety Report 7884899-2 (Version None)
Quarter: 2011Q4

REPORT INFORMATION
  Report Type: 
  Country: None (occurrence: None)
  Receive Date: 20111102
  Receipt Date: 20111027
  Transmission Date: 20120403
  Serious: Yes (Hospitalization)
  Sender: FDA-Public Use
  Company Number: US-ABBOTT-11P-163-0869421-00

PATIENT
  Sex: Female
  Weight: 71.732 kg

DRUGS (4)
  1. LUPRON DEPOT [Suspect]
     Dates: start: 20110929, end: 20110929
  2. MICROGESTIN 1/20 [Suspect]
     Indication: CONTRACEPTION
     Dates: start: 20100801, end: 20110901
  3. MICROGESTIN 1/20 [Suspect]
     Indication: ENDOMETRIOSIS
  4. LUPRON DEPOT [Suspect]
     Indication: ENDOMETRIOSIS
     Dates: start: 20100220, end: 20100720

REACTIONS (5)
  - DEEP VEIN THROMBOSIS [None]
  - PULMONARY EMBOLISM [None]
  - DYSPNOEA [None]
  - PAIN IN EXTREMITY [None]
  - ENDOMETRIOSIS [None]
